FAERS Safety Report 24613019 (Version 1)
Quarter: 2024Q4

REPORT INFORMATION
  Report Type: Other
  Country: US (occurrence: US)
  Receive Date: 20241113
  Receipt Date: 20241113
  Transmission Date: 20250114
  Serious: Yes (Life-Threatening)
  Sender: B BRAUN
  Company Number: US-B.Braun Medical Inc.-2164941

PATIENT
  Age: 40 Year
  Sex: Female

DRUGS (5)
  1. DEXTROSE\LIDOCAINE HYDROCHLORIDE [Suspect]
     Active Substance: DEXTROSE\LIDOCAINE HYDROCHLORIDE
     Indication: Ventricular tachycardia
  2. MAGNESIUM [Suspect]
     Active Substance: MAGNESIUM
  3. ISOPROTERENOL [Concomitant]
     Active Substance: ISOPROTERENOL
  4. METHADONE [Concomitant]
     Active Substance: METHADONE HYDROCHLORIDE
  5. AMIODARONE [Suspect]
     Active Substance: AMIODARONE

REACTIONS (1)
  - Drug ineffective [Unknown]
